APPROVED DRUG PRODUCT: SAXAGLIPTIN AND METFORMIN HYDROCHLORIDE
Active Ingredient: METFORMIN HYDROCHLORIDE; SAXAGLIPTIN HYDROCHLORIDE
Strength: 1GM;EQ 2.5MG BASE
Dosage Form/Route: TABLET, EXTENDED RELEASE;ORAL
Application: A207678 | Product #002 | TE Code: AB
Applicant: DR REDDYS LABORATORIES SA
Approved: Aug 9, 2023 | RLD: No | RS: No | Type: RX